FAERS Safety Report 5682475-3 (Version None)
Quarter: 2008Q1

REPORT INFORMATION
  Report Type: 
  Country: None (occurrence: None)
  Receive Date: 20080326
  Receipt Date: 20080326
  Transmission Date: 20080703
  Serious: Yes (Hospitalization)
  Sender: FDA-Public Use
  Company Number: None

PATIENT
  Sex: Male
  Weight: 87.1 kg

DRUGS (9)
  1. SPIRONOLACTONE [Suspect]
     Indication: HYPERTENSION
     Dosage: 50MG PO DAILY
     Route: 048
     Dates: start: 20070904, end: 20080115
  2. SPIRONOLACTONE [Suspect]
     Indication: OEDEMA
     Dosage: 50MG PO DAILY
     Route: 048
     Dates: start: 20070904, end: 20080115
  3. BACTRIM [Concomitant]
  4. SIROLIMUS [Concomitant]
  5. MULTI-VITAMIN [Concomitant]
  6. MYCOPHENOLATE MOFETIL [Concomitant]
  7. FUROSEMIDE [Concomitant]
  8. ESCITALOPRAM OXALATE [Concomitant]
  9. OXYCODONE AND ACETAMINOPHEN [Concomitant]

REACTIONS (1)
  - BLOOD POTASSIUM INCREASED [None]
